FAERS Safety Report 6553573-7 (Version None)
Quarter: 2010Q1

REPORT INFORMATION
  Report Type: 
  Country: None (occurrence: None)
  Receive Date: 20100127
  Receipt Date: 20100118
  Transmission Date: 20100710
  Serious: Yes (Other)
  Sender: FDA-Public Use
  Company Number: US-SANOFI-AVENTIS-2010SA003670

PATIENT
  Age: 71 Year
  Sex: Male

DRUGS (5)
  1. MULTAQ [Suspect]
     Indication: ATRIAL FIBRILLATION
     Route: 048
     Dates: start: 20091101
  2. PROPRANOLOL [Suspect]
     Route: 065
     Dates: end: 20100101
  3. PROPRANOLOL [Suspect]
     Route: 065
     Dates: start: 20100101
  4. PROPRANOLOL [Suspect]
     Route: 065
  5. COUMADIN [Concomitant]
     Route: 065

REACTIONS (2)
  - ATRIAL FIBRILLATION [None]
  - INSOMNIA [None]
